FAERS Safety Report 5725737-3 (Version None)
Quarter: 2008Q2

REPORT INFORMATION
  Report Type: 
  Country: None (occurrence: None)
  Receive Date: 20080501
  Receipt Date: 20080423
  Transmission Date: 20081010
  Serious: Yes (Other)
  Sender: FDA-Public Use
  Company Number: US-MERCK-0804USA01987

PATIENT
  Age: 65 Year
  Sex: Male

DRUGS (1)
  1. SINGULAIR [Suspect]
     Route: 048
     Dates: start: 20060106

REACTIONS (7)
  - DEPRESSION [None]
  - DISSOCIATIVE DISORDER [None]
  - DYSTHYMIC DISORDER [None]
  - FATIGUE [None]
  - STRESS [None]
  - SUICIDAL IDEATION [None]
  - THINKING ABNORMAL [None]
